FAERS Safety Report 6860414-7 (Version None)
Quarter: 2010Q3

REPORT INFORMATION
  Report Type: 
  Country: None (occurrence: None)
  Receive Date: 20100719
  Receipt Date: 20100719
  Transmission Date: 20110219
  Serious: Yes (Other)
  Sender: FDA-Public Use
  Company Number: None

PATIENT
  Age: 84 Year
  Sex: Male
  Weight: 84.369 kg

DRUGS (2)
  1. ROPINIROLE [Suspect]
     Indication: RESTLESS LEGS SYNDROME
     Dosage: 1 TAB Q6H PO
     Route: 048
     Dates: start: 20080821, end: 20080825
  2. ROPINIROLE [Suspect]
     Indication: RESTLESS LEGS SYNDROME
     Dosage: 1 TAB Q6H PO
     Route: 048
     Dates: start: 20090825, end: 20090828

REACTIONS (2)
  - PRODUCT SUBSTITUTION ISSUE [None]
  - VOMITING [None]
